FAERS Safety Report 24418399 (Version 4)
Quarter: 2024Q4

REPORT INFORMATION
  Report Type: Spontaneous
  Country: US (occurrence: US)
  Receive Date: 20241009
  Receipt Date: 20241213
  Transmission Date: 20250114
  Serious: Yes (Other)
  Sender: SANOFI AVENTIS
  Company Number: US-SA-2024SA290822

PATIENT
  Age: 31 Year
  Sex: Male

DRUGS (5)
  1. ELOCTATE [Suspect]
     Active Substance: EFMOROCTOCOG ALFA
     Indication: Factor VIII deficiency
     Dosage: 4875 U, QD
     Route: 042
     Dates: start: 201801
  2. ELOCTATE [Suspect]
     Active Substance: EFMOROCTOCOG ALFA
     Indication: Factor VIII deficiency
     Dosage: 4875 U, QD
     Route: 042
     Dates: start: 201801
  3. ELOCTATE [Suspect]
     Active Substance: EFMOROCTOCOG ALFA
     Dosage: INFUSE 4320 UNITS (3888-4752) SLOW IV PUSH EVERY 4 DAYS FOR PROPHYLAXIS/INFUSE 4320 UNITS(3888-4752)
     Route: 042
  4. ELOCTATE [Suspect]
     Active Substance: EFMOROCTOCOG ALFA
     Dosage: INFUSE 4320 UNITS (3888-4752) SLOW IV PUSH EVERY 4 DAYS FOR PROPHYLAXIS/INFUSE 4320 UNITS(3888-4752)
     Route: 042
  5. SODIUM CHLORIDE [Concomitant]
     Active Substance: SODIUM CHLORIDE
     Dosage: UNK

REACTIONS (3)
  - Haemarthrosis [Recovered/Resolved]
  - Haemorrhage [Recovered/Resolved]
  - Weight increased [Unknown]

NARRATIVE: CASE EVENT DATE: 20240907
